FAERS Safety Report 5511422-X (Version None)
Quarter: 2007Q4

REPORT INFORMATION
  Report Type: 
  Country: None (occurrence: None)
  Receive Date: 20071107
  Receipt Date: 20071029
  Transmission Date: 20080405
  Serious: Yes (Hospitalization, Other)
  Sender: FDA-Public Use
  Company Number: 2007SP010118

PATIENT
  Age: 40 Year
  Sex: Male
  Weight: 62 kg

DRUGS (7)
  1. PEG-INTRON [Suspect]
     Indication: HEPATITIS C
     Dosage: 100 MCG;QW;SC
     Route: 058
     Dates: start: 20070226, end: 20070507
  2. REBETOL [Suspect]
     Indication: HEPATITIS C
     Dosage: 800 MG;PO
     Route: 048
     Dates: start: 20070226, end: 20070507
  3. SLO-BID [Concomitant]
  4. PULMICORT [Concomitant]
  5. LOXONIN [Concomitant]
  6. FAMOTIDINE [Concomitant]
  7. RUEFRIEN [Concomitant]

REACTIONS (16)
  - ABNORMAL BEHAVIOUR [None]
  - ALTERED STATE OF CONSCIOUSNESS [None]
  - ANOREXIA [None]
  - ARTHRALGIA [None]
  - BACK PAIN [None]
  - DELUSION [None]
  - DEPRESSED LEVEL OF CONSCIOUSNESS [None]
  - DRUG DOSE OMISSION [None]
  - HEADACHE [None]
  - HYPERHIDROSIS [None]
  - INSOMNIA [None]
  - MALAISE [None]
  - MUSCULOSKELETAL STIFFNESS [None]
  - PYREXIA [None]
  - RESTLESSNESS [None]
  - TREMOR [None]
